FAERS Safety Report 5448877-5 (Version None)
Quarter: 2007Q3

REPORT INFORMATION
  Report Type: 
  Country: None (occurrence: None)
  Receive Date: 20070911
  Receipt Date: 20070806
  Transmission Date: 20080115
  Serious: No
  Sender: FDA-Public Use
  Company Number: US-BRISTOL-MYERS SQUIBB COMPANY-13868401

PATIENT
  Sex: Female
  Weight: 52 kg

DRUGS (7)
  1. EMSAM [Suspect]
     Indication: DEPRESSION
     Route: 062
  2. EMSAM [Suspect]
     Indication: ANXIETY
     Route: 062
  3. EMSAM [Suspect]
     Route: 062
  4. EMSAM [Suspect]
     Route: 062
  5. XANAX [Concomitant]
  6. LAMICTAL [Concomitant]
  7. ABILIFY [Concomitant]

REACTIONS (1)
  - DRUG INEFFECTIVE [None]
